FAERS Safety Report 8366243-X (Version None)
Quarter: 2012Q2

REPORT INFORMATION
  Report Type: 
  Country: None (occurrence: None)
  Receive Date: 20120517
  Receipt Date: 20120514
  Transmission Date: 20120825
  Serious: Yes (Life-Threatening, Other)
  Sender: FDA-Public Use
  Company Number: PHEH2012US007440

PATIENT
  Sex: Female

DRUGS (23)
  1. POTASSIUM CHLORIDE [Concomitant]
  2. AZATUMINGIN [Concomitant]
  3. AZITHROMYCIN [Concomitant]
  4. ATROVENT [Concomitant]
  5. PROPYLENE GLYCOL [Concomitant]
  6. DIGOXIN [Concomitant]
  7. LOMOTIL [Concomitant]
  8. SULP [Concomitant]
  9. XANAX [Concomitant]
  10. ASPIRIN [Concomitant]
  11. VITAMIN D [Concomitant]
  12. IBUPROFEN [Concomitant]
  13. COLON [Concomitant]
  14. RECLAST [Suspect]
     Dosage: UNK UKN, YEARLY
     Route: 042
     Dates: start: 20111101
  15. PREMARIN [Concomitant]
  16. CALCIUM [Concomitant]
  17. XOPENEX [Concomitant]
  18. TOPROL-XL [Concomitant]
  19. CARDIZEM [Concomitant]
  20. LEVAQUIN [Concomitant]
  21. ONDANSETRON [Concomitant]
  22. NEUROTIC [Concomitant]
  23. VIKATAN [Concomitant]

REACTIONS (16)
  - PYREXIA [None]
  - GLAUCOMA [None]
  - CRYING [None]
  - MALAISE [None]
  - BONE PAIN [None]
  - LOSS OF CONSCIOUSNESS [None]
  - SUICIDAL BEHAVIOUR [None]
  - HEADACHE [None]
  - PAIN [None]
  - VOMITING [None]
  - DIARRHOEA [None]
  - URTICARIA [None]
  - CHILLS [None]
  - BLINDNESS UNILATERAL [None]
  - MOVEMENT DISORDER [None]
  - NAUSEA [None]
